FAERS Safety Report 17806648 (Version 1)
Quarter: 2020Q2

REPORT INFORMATION
  Report Type: Spontaneous
  Country: CN (occurrence: CN)
  Receive Date: 20200520
  Receipt Date: 20200520
  Transmission Date: 20200714
  Serious: Yes (Other)
  Sender: FDA-Public Use
  Company Number: CN-TEVA-2020-CN-1237349

PATIENT

DRUGS (8)
  1. PRAMIPEXOLE. [Concomitant]
     Active Substance: PRAMIPEXOLE
     Indication: PARKINSON^S DISEASE
     Dosage: 0.5 TWICE PER DAY (EVERY NOON AND NIGHT)
     Route: 065
  2. CLONAZEPAM. [Concomitant]
     Active Substance: CLONAZEPAM
     Dosage: 0.25 MG TWICE PER DAY (EVERY NOON AND NIGHT)
  3. RASAGILINE MESILATE [Suspect]
     Active Substance: RASAGILINE MESYLATE
     Indication: PARKINSON^S DISEASE
     Dosage: UNKNOWN DOSAGE
     Route: 065
  4. BENZHEXOL [Concomitant]
     Active Substance: TRIHEXYPHENIDYL
     Dosage: 0.5
  5. COMPOUND CAPIBIDOPA [Concomitant]
     Dosage: 0.25
     Route: 048
  6. MADOPAR [Concomitant]
     Active Substance: BENSERAZIDE HYDROCHLORIDE\LEVODOPA
     Dosage: 0.25
  7. TRASTAL [Concomitant]
     Dosage: 2 DOSAGE FORMS DAILY; 1 MG TWICE PER DAY (EVERY MORNING AND NIGHT, 1 TABLET)?1 DOSAGE FORM = 1 TABLE
  8. RASAGILINE MESILATE [Suspect]
     Active Substance: RASAGILINE MESYLATE
     Dosage: CHANGED TO 0,5 ONE PER DAY, EVERY MORNING
     Route: 065

REACTIONS (12)
  - Dizziness [Unknown]
  - Angina pectoris [Unknown]
  - Heart rate increased [Unknown]
  - Gait disturbance [Unknown]
  - Speech disorder [Unknown]
  - Musculoskeletal stiffness [Unknown]
  - Musculoskeletal discomfort [Unknown]
  - Language disorder [Unknown]
  - Dyskinesia [Unknown]
  - Dysgraphia [Unknown]
  - Amnesia [Unknown]
  - Bradykinesia [Unknown]
